FAERS Safety Report 25515392 (Version 1)
Quarter: 2025Q3

REPORT INFORMATION
  Report Type: Report from Study
  Country: EU (occurrence: EU)
  Receive Date: 20250704
  Receipt Date: 20250704
  Transmission Date: 20251021
  Serious: Yes (Death, Other)
  Sender: CELLTRION
  Company Number: EU-PFIZER INC-202500034871

PATIENT

DRUGS (1)
  1. RITUXIMAB [Suspect]
     Active Substance: RITUXIMAB
     Indication: Dacryoadenitis acquired

REACTIONS (5)
  - Death [Fatal]
  - Hidradenitis [Unknown]
  - Condition aggravated [Unknown]
  - Groin abscess [Unknown]
  - Intentional product use issue [Unknown]
